FAERS Safety Report 21356672 (Version 1)
Quarter: 2022Q3

REPORT INFORMATION
  Report Type: Spontaneous
  Country: US (occurrence: US)
  Receive Date: 20220920
  Receipt Date: 20220920
  Transmission Date: 20221027
  Serious: Yes (Hospitalization)
  Sender: FDA-Public Use
  Company Number: US-GILEAD-2022-0598258

PATIENT
  Age: 41 Year
  Sex: Male

DRUGS (7)
  1. BIKTARVY [Suspect]
     Active Substance: BICTEGRAVIR SODIUM\EMTRICITABINE\TENOFOVIR ALAFENAMIDE FUMARATE
     Indication: HIV infection
     Route: 065
  2. ENTECAVIR [Suspect]
     Active Substance: ENTECAVIR
     Indication: HIV infection
     Dosage: UNK
     Route: 065
  3. VALACYCLOVIR [Concomitant]
     Active Substance: VALACYCLOVIR HYDROCHLORIDE
  4. METHOCARBAMOL [Concomitant]
     Active Substance: METHOCARBAMOL
  5. PREGABALIN [Concomitant]
     Active Substance: PREGABALIN
  6. EMTRICITABINE [Concomitant]
     Active Substance: EMTRICITABINE
  7. DOLUTEGRAVIR [Concomitant]
     Active Substance: DOLUTEGRAVIR

REACTIONS (8)
  - Glycosylated haemoglobin increased [Unknown]
  - Polyuria [Unknown]
  - Polydipsia [Unknown]
  - Blood glucose increased [Unknown]
  - Blood ketone body [Unknown]
  - Insulin C-peptide abnormal [Unknown]
  - Vomiting [Unknown]
  - Nausea [Unknown]
